FAERS Safety Report 13471078 (Version 1)
Quarter: 2017Q2

REPORT INFORMATION
  Report Type: Spontaneous
  Country: US (occurrence: US)
  Receive Date: 20170421
  Receipt Date: 20170421
  Transmission Date: 20170830
  Serious: No
  Sender: FDA-Public Use
  Company Number: None

PATIENT
  Sex: Male

DRUGS (1)
  1. SUTENT [Suspect]
     Active Substance: SUNITINIB MALATE
     Indication: BONE CANCER METASTATIC
     Dosage: 37.5MG DAILY FOR 14 DAYS ON, 7 DAYS OFF PO
     Route: 048
     Dates: start: 20150915, end: 20170420

REACTIONS (1)
  - Blood creatinine increased [None]
